FAERS Safety Report 21799090 (Version 6)
Quarter: 2023Q2

REPORT INFORMATION
  Report Type: Spontaneous
  Country: BR (occurrence: BR)
  Receive Date: 20221230
  Receipt Date: 20230626
  Transmission Date: 20230722
  Serious: Yes (Other)
  Sender: FDA-Public Use
  Company Number: BR-TAKEDA-2022TUS102924

PATIENT
  Sex: Male
  Weight: 75 kg

DRUGS (4)
  1. LISDEXAMFETAMINE DIMESYLATE [Suspect]
     Active Substance: LISDEXAMFETAMINE DIMESYLATE
     Indication: Attention deficit hyperactivity disorder
     Dosage: 1 DOSAGE FORM, QD
     Route: 048
  2. LISDEXAMFETAMINE DIMESYLATE [Suspect]
     Active Substance: LISDEXAMFETAMINE DIMESYLATE
     Dosage: UNK
     Route: 065
  3. PREGABALIN [Concomitant]
     Active Substance: PREGABALIN
     Dosage: UNK
     Route: 065
  4. QUETIAPINE [Concomitant]
     Active Substance: QUETIAPINE
     Dosage: UNK
     Route: 065

REACTIONS (10)
  - Asthma [Unknown]
  - Cervical vertebral fracture [Unknown]
  - Intervertebral disc protrusion [Unknown]
  - Road traffic accident [Unknown]
  - Lumbar hernia [Unknown]
  - Dry mouth [Unknown]
  - Decreased appetite [Unknown]
  - Drug ineffective [Unknown]
  - Product availability issue [Unknown]
  - Inappropriate schedule of product administration [Unknown]
